FAERS Safety Report 25554118 (Version 1)
Quarter: 2025Q3

REPORT INFORMATION
  Report Type: Spontaneous
  Country: EU (occurrence: EU)
  Receive Date: 20250715
  Receipt Date: 20250715
  Transmission Date: 20251020
  Serious: Yes (Other)
  Sender: CHEPLAPHARM
  Company Number: None

PATIENT
  Age: 83 Year
  Sex: Female

DRUGS (11)
  1. HYDROXYUREA [Suspect]
     Active Substance: HYDROXYUREA
     Indication: Polycythaemia vera
     Route: 048
     Dates: start: 20190325, end: 20250602
  2. HYDROXYUREA [Suspect]
     Active Substance: HYDROXYUREA
     Indication: Polycythaemia vera
     Route: 048
     Dates: start: 20190325
  3. SPIRONOLACTONE [Concomitant]
     Active Substance: SPIRONOLACTONE
     Dates: start: 20250210
  4. ELIQUIS [Concomitant]
     Active Substance: APIXABAN
     Dates: start: 20190301, end: 20250530
  5. BISOPROLOL FUMARATE [Concomitant]
     Active Substance: BISOPROLOL FUMARATE
     Dates: start: 20210529
  6. Comirnaty [Concomitant]
     Dates: start: 20250326, end: 20250521
  7. ASPIRIN [Concomitant]
     Active Substance: ASPIRIN
     Dates: start: 20210317, end: 20250530
  8. POTASSIUM CHLORIDE [Concomitant]
     Active Substance: POTASSIUM CHLORIDE
     Dates: start: 20250312, end: 20250520
  9. ATORVASTATIN [Concomitant]
     Active Substance: ATORVASTATIN
     Dates: start: 20171025
  10. Oxycodone Depot [Concomitant]
     Dates: start: 20240527, end: 20250526
  11. Furix [Concomitant]
     Dates: start: 20250425, end: 20250601

REACTIONS (3)
  - Wound [Not Recovered/Not Resolved]
  - Jaundice [Not Recovered/Not Resolved]
  - Dry gangrene [Not Recovered/Not Resolved]

NARRATIVE: CASE EVENT DATE: 20250518
